FAERS Safety Report 22176971 (Version 2)
Quarter: 2023Q2

REPORT INFORMATION
  Report Type: Report from Study
  Country: MX (occurrence: MX)
  Receive Date: 20230405
  Receipt Date: 20230417
  Transmission Date: 20230722
  Serious: Yes (Hospitalization, Other)
  Sender: FDA-Public Use
  Company Number: MX-002147023-NVSC2023MX077143

PATIENT
  Age: 75 Year
  Sex: Female
  Weight: 47 kg

DRUGS (5)
  1. EXFORGE HCT [Suspect]
     Active Substance: AMLODIPINE BESYLATE\HYDROCHLOROTHIAZIDE\VALSARTAN
     Indication: Blood pressure increased
     Dosage: 1 DOSAGE FORM, QD (STARTED 5 OR 7 YEARS AGO)
     Route: 048
     Dates: end: 202105
  2. EXFORGE HCT [Suspect]
     Active Substance: AMLODIPINE BESYLATE\HYDROCHLOROTHIAZIDE\VALSARTAN
     Dosage: 0.25 DOSAGE FORM, BID (IN THE MORNING AND AT NIGHT)
     Route: 048
     Dates: start: 202105
  3. EXFORGE HCT [Suspect]
     Active Substance: AMLODIPINE BESYLATE\HYDROCHLOROTHIAZIDE\VALSARTAN
     Dosage: 0.25 DOSAGE FORM, Q12H
     Route: 048
     Dates: start: 202106
  4. INSULIN LISPRO [Concomitant]
     Active Substance: INSULIN LISPRO
     Indication: Diabetes mellitus
     Dosage: 4 IU, QD
     Route: 058
     Dates: start: 2018
  5. ESCITALOPRAM [Concomitant]
     Active Substance: ESCITALOPRAM OXALATE
     Indication: Emotional disorder
     Dosage: 1 DOSAGE FORM, Q12H
     Route: 048
     Dates: start: 2014

REACTIONS (6)
  - Cerebrovascular accident [Recovered/Resolved with Sequelae]
  - Amnesia [Not Recovered/Not Resolved]
  - Cystitis [Recovering/Resolving]
  - Hypotension [Recovering/Resolving]
  - Wrong technique in product usage process [Unknown]
  - Inappropriate schedule of product administration [Unknown]

NARRATIVE: CASE EVENT DATE: 20210501
